FAERS Safety Report 24328999 (Version 2)
Quarter: 2024Q3

REPORT INFORMATION
  Report Type: Spontaneous
  Country: ES (occurrence: ES)
  Receive Date: 20240917
  Receipt Date: 20240926
  Transmission Date: 20241017
  Serious: Yes (Other)
  Sender: AMGEN
  Company Number: ES-ROCHE-3567365

PATIENT
  Age: 55 Year
  Sex: Female
  Weight: 64.6 kg

DRUGS (12)
  1. TRASTUZUMAB [Suspect]
     Active Substance: TRASTUZUMAB
     Indication: Gastrooesophageal cancer
     Dosage: START AND END DATE OF MOST RECENT DOSE OF STUDY DRUG PRIOR TO AE 10/APR/2023 11:20 AM TO 12:55 PM AT
     Route: 040
     Dates: start: 20230410
  2. RUNIMOTAMAB [Suspect]
     Active Substance: RUNIMOTAMAB
     Indication: Gastrooesophageal cancer
     Dosage: 20 MILLIGRAM, Q3WK (START DATE OF MOST RECENT DOSE OF STUDY DRUG PRIOR TO AE 18/APR/2023 2:05 PM TO
     Route: 042
     Dates: start: 20230411
  3. METAMIZOL [Concomitant]
     Active Substance: METAMIZOLE SODIUM
     Indication: Pain
     Dosage: 575 MILLIGRAM, AS NECESSARY
     Route: 048
     Dates: start: 2022
  4. ACETAMINOPHEN [Concomitant]
     Active Substance: ACETAMINOPHEN
     Indication: Pain
     Dosage: 1 GRAM (SOLUTION)
     Route: 040
     Dates: start: 20230418, end: 20230418
  5. ACETAMINOPHEN [Concomitant]
     Active Substance: ACETAMINOPHEN
     Dosage: 500 MILLIGRAM (TABLET)
     Route: 048
     Dates: start: 2022
  6. ACETAMINOPHEN [Concomitant]
     Active Substance: ACETAMINOPHEN
     Dosage: 1 GRAM  (SOLUTION)
     Route: 040
     Dates: start: 20230410, end: 20230410
  7. ACETAMINOPHEN [Concomitant]
     Active Substance: ACETAMINOPHEN
     Dosage: 1 GRAM (SOLUTION)
     Route: 040
     Dates: start: 20230411, end: 20230411
  8. ENALAPRIL MALEATE [Concomitant]
     Active Substance: ENALAPRIL MALEATE
     Indication: Hypertension
     Dosage: 20 MILLIGRAM, QD
     Route: 048
     Dates: start: 2022
  9. DEXAMETHASONE [Concomitant]
     Active Substance: DEXAMETHASONE
     Dosage: 20 MILLIGRAM
     Route: 040
     Dates: start: 20230418, end: 20230418
  10. DEXAMETHASONE [Concomitant]
     Active Substance: DEXAMETHASONE
     Dosage: 20 MILLIGRAM
     Route: 040
     Dates: start: 20230411, end: 20230411
  11. FAMOTIDINE [Concomitant]
     Active Substance: FAMOTIDINE
     Dosage: 40 MILLIGRAM, QD
     Route: 048
     Dates: start: 2022
  12. POLYETHYLENE GLYCOLS [Concomitant]
     Active Substance: POLYETHYLENE GLYCOLS
     Indication: Constipation
     Dosage: 13.13 GRAM, QD
     Route: 048
     Dates: start: 2022

REACTIONS (1)
  - Cytokine release syndrome [Recovered/Resolved]

NARRATIVE: CASE EVENT DATE: 20230419
